FAERS Safety Report 18285733 (Version 1)
Quarter: 2020Q3

REPORT INFORMATION
  Report Type: Spontaneous
  Country: US (occurrence: US)
  Receive Date: 20200919
  Receipt Date: 20200919
  Transmission Date: 20201103
  Serious: Yes (Other)
  Sender: FDA-Public Use
  Company Number: US-SUN PHARMACEUTICAL INDUSTRIES LTD-2020R1-261094

PATIENT
  Age: 82 Year
  Sex: Male

DRUGS (2)
  1. BICALUTAMIDE. [Suspect]
     Active Substance: BICALUTAMIDE
     Dosage: 150 MILLIGRAM, DAILY
     Route: 048
  2. BICALUTAMIDE. [Suspect]
     Active Substance: BICALUTAMIDE
     Indication: PROSTATE CANCER
     Dosage: 50 MILLIGRAM, DAILY
     Route: 048

REACTIONS (4)
  - Erectile dysfunction [Unknown]
  - Hot flush [Unknown]
  - Loss of libido [Unknown]
  - Sexual dysfunction [Recovering/Resolving]
